FAERS Safety Report 19899806 (Version 1)
Quarter: 2021Q3

REPORT INFORMATION
  Report Type: Spontaneous
  Country: US (occurrence: US)
  Receive Date: 20210930
  Receipt Date: 20210930
  Transmission Date: 20211014
  Serious: No
  Sender: FDA-Public Use
  Company Number: US-AJANTA PHARMA USA INC.-2118979

PATIENT
  Age: 79 Year
  Sex: Male
  Weight: 113.64 kg

DRUGS (6)
  1. PLAVIX [Concomitant]
     Active Substance: CLOPIDOGREL BISULFATE
  2. CHOLESTYRAMINE (ANDA 211119) [Suspect]
     Active Substance: CHOLESTYRAMINE
  3. CARVEDILOL. [Concomitant]
     Active Substance: CARVEDILOL
  4. ALLOPURINOL. [Concomitant]
     Active Substance: ALLOPURINOL
  5. LISINOPRIL. [Concomitant]
     Active Substance: LISINOPRIL
  6. GABAPENTIN. [Concomitant]
     Active Substance: GABAPENTIN

REACTIONS (3)
  - Product solubility abnormal [Not Recovered/Not Resolved]
  - Therapeutic product effect incomplete [Not Recovered/Not Resolved]
  - Product use complaint [Not Recovered/Not Resolved]

NARRATIVE: CASE EVENT DATE: 202107
